FAERS Safety Report 10540718 (Version 2)
Quarter: 2014Q4

REPORT INFORMATION
  Report Type: Report from Study
  Country: US (occurrence: US)
  Receive Date: 20141024
  Receipt Date: 20141024
  Transmission Date: 20150529
  Serious: No
  Sender: FDA-Public Use
  Company Number: US-ABBVIE-09P-163-0579254-00

PATIENT
  Age: 35 Year
  Sex: Female

DRUGS (4)
  1. KALETRA [Suspect]
     Active Substance: LOPINAVIR\RITONAVIR
     Indication: PRODUCT USED FOR UNKNOWN INDICATION
     Dosage: DAILY DOSE: 800/200 MILLIGRAMS
     Route: 048
     Dates: start: 20090227
  2. RETROVIR [Suspect]
     Active Substance: ZIDOVUDINE
     Indication: PRODUCT USED FOR UNKNOWN INDICATION
     Dosage: DAILY DOSE: 2 DOSAGE FORMS
     Route: 042
     Dates: start: 20090529, end: 20090529
  3. TRUVADA [Suspect]
     Active Substance: EMTRICITABINE\TENOFOVIR DISOPROXIL FUMARATE
     Indication: PRODUCT USED FOR UNKNOWN INDICATION
     Dosage: DAILY DOSE: 1 TABLET
     Route: 048
     Dates: start: 20090227
  4. RETROVIR [Suspect]
     Active Substance: ZIDOVUDINE
     Dosage: DAILY DOSE: 1 DOSAGE FORM
     Route: 042
     Dates: start: 20090529, end: 20090529

REACTIONS (3)
  - Uterine leiomyoma [Unknown]
  - Coagulopathy [Unknown]
  - Shortened cervix [Unknown]
